FAERS Safety Report 9807629 (Version 1)
Quarter: 2014Q1

REPORT INFORMATION
  Report Type: Spontaneous
  Country: US (occurrence: US)
  Receive Date: 20140110
  Receipt Date: 20140110
  Transmission Date: 20141002
  Serious: No
  Sender: FDA-Public Use
  Company Number: US-SANOFI-AVENTIS-2013SA072543

PATIENT
  Age: 54 Year
  Sex: Female
  Weight: 69.39 kg

DRUGS (13)
  1. PLAVIX [Suspect]
     Route: 065
  2. SPRYCEL [Suspect]
     Route: 048
     Dates: start: 20130430
  3. ALLOPURINOL [Concomitant]
  4. ASA [Concomitant]
  5. DIGOXIN [Concomitant]
  6. POTASSIUM [Concomitant]
  7. COLACE [Concomitant]
  8. LIPITOR [Concomitant]
  9. PRILOSEC [Concomitant]
  10. LASIX [Concomitant]
  11. FERROUS SULFATE [Concomitant]
  12. CARVEDILOL [Concomitant]
  13. ELIQUIS [Concomitant]

REACTIONS (9)
  - Melaena [Not Recovered/Not Resolved]
  - Faeces discoloured [Not Recovered/Not Resolved]
  - Alopecia [Not Recovered/Not Resolved]
  - Diarrhoea [Not Recovered/Not Resolved]
  - Weight decreased [Not Recovered/Not Resolved]
  - Fatigue [Not Recovered/Not Resolved]
  - Anaemia [Not Recovered/Not Resolved]
  - Rash [Not Recovered/Not Resolved]
  - Pruritus [Not Recovered/Not Resolved]
